FAERS Safety Report 10249351 (Version 4)
Quarter: 2014Q3

REPORT INFORMATION
  Report Type: Spontaneous
  Country: US (occurrence: US)
  Receive Date: 20140620
  Receipt Date: 20140801
  Transmission Date: 20150326
  Serious: Yes (Hospitalization, Other)
  Sender: FDA-Public Use
  Company Number: US-PFIZER INC-2014165697

PATIENT
  Sex: Female

DRUGS (1)
  1. PREMARIN [Suspect]
     Active Substance: ESTROGENS, CONJUGATED
     Indication: MENOPAUSAL SYMPTOMS
     Dosage: 0.9 MG, 1X/DAY
     Route: 048

REACTIONS (5)
  - Cerebrovascular accident [Unknown]
  - Malaise [Unknown]
  - Pneumonia [Unknown]
  - Foot fracture [Unknown]
  - Ear pain [Unknown]
